FAERS Safety Report 18519491 (Version 3)
Quarter: 2020Q4

REPORT INFORMATION
  Report Type: Report from Study
  Country: CZ (occurrence: CZ)
  Receive Date: 20201118
  Receipt Date: 20201124
  Transmission Date: 20210114
  Serious: Yes (Other)
  Sender: FDA-Public Use
  Company Number: CZ-LUNDBECK-DKLU3023846

PATIENT
  Age: 54 Year
  Sex: Female
  Weight: 66 kg

DRUGS (5)
  1. SUMATRIPTAN. [Concomitant]
     Active Substance: SUMATRIPTAN
     Indication: MIGRAINE
     Dosage: PRN
     Route: 048
     Dates: start: 2018
  2. TORECAN [Concomitant]
     Active Substance: THIETHYLPERAZINE MALATE
     Indication: MIGRAINE
     Dosage: 6.5 MG/ML PRN
     Route: 042
     Dates: start: 2019
  3. NOVALGIN [Concomitant]
     Indication: MIGRAINE
     Dosage: 500 MG/ML PRN
     Route: 042
     Dates: start: 2019
  4. EPTINEZUMAB. [Suspect]
     Active Substance: EPTINEZUMAB
     Indication: MIGRAINE PROPHYLAXIS
     Route: 042
     Dates: start: 20201103, end: 20201103
  5. DETRALEX [Concomitant]
     Active Substance: DIOSMIN\HESPERIDIN
     Indication: VARICOSE VEIN
     Route: 048
     Dates: start: 202004

REACTIONS (1)
  - Anaphylactic reaction [Recovered/Resolved]

NARRATIVE: CASE EVENT DATE: 20201103
